FAERS Safety Report 17499412 (Version 2)
Quarter: 2021Q2

REPORT INFORMATION
  Report Type: Spontaneous
  Country: US (occurrence: US)
  Receive Date: 20200304
  Receipt Date: 20210407
  Transmission Date: 20210716
  Serious: No
  Sender: FDA-Public Use
  Company Number: US-PTC THERAPEUTICS, INC.-US-2020PTC000054

PATIENT
  Sex: Male
  Weight: 44.44 kg

DRUGS (2)
  1. EMFLAZA [Suspect]
     Active Substance: DEFLAZACORT
     Indication: DUCHENNE MUSCULAR DYSTROPHY
     Dosage: 1.2 ML, QD
     Route: 048
     Dates: start: 201911
  2. EMFLAZA [Suspect]
     Active Substance: DEFLAZACORT
     Indication: BECKER^S MUSCULAR DYSTROPHY
     Dosage: 1.6 ML, QD
     Route: 048
     Dates: start: 201911

REACTIONS (4)
  - Fall [Unknown]
  - Gait disturbance [Unknown]
  - Weight increased [Unknown]
  - Drug ineffective [Unknown]
